FAERS Safety Report 8089364-8 (Version None)
Quarter: 2012Q1

REPORT INFORMATION
  Report Type: 
  Country: None (occurrence: None)
  Receive Date: 20120128
  Receipt Date: 20110628
  Transmission Date: 20120608
  Serious: No
  Sender: FDA-Public Use
  Company Number: US-ABBOTT-11P-163-0835784-00

PATIENT
  Sex: Female
  Weight: 90.8 kg

DRUGS (12)
  1. LYRICA [Concomitant]
     Indication: ARTHRITIS
  2. TRILEPTAL [Concomitant]
     Indication: BIPOLAR DISORDER
  3. PRILOSEC [Concomitant]
     Indication: DYSPEPSIA
  4. SIMVASTATIN [Concomitant]
     Indication: BLOOD CHOLESTEROL INCREASED
  5. SUBOXONE [Concomitant]
     Indication: DRUG ABUSE
  6. FLOMAX [Concomitant]
     Indication: NEPHROLITHIASIS
  7. HUMIRA [Suspect]
     Indication: PSORIASIS
     Dates: start: 20100101
  8. LYRICA [Concomitant]
     Indication: PAIN
  9. SEROQUEL [Concomitant]
     Indication: INSOMNIA
  10. CELEXA [Concomitant]
     Indication: BIPOLAR DISORDER
  11. HUMIRA [Suspect]
     Indication: PSORIATIC ARTHROPATHY
  12. XANAX [Concomitant]
     Indication: BIPOLAR DISORDER

REACTIONS (2)
  - NEPHROLITHIASIS [None]
  - URTICARIA [None]
